FAERS Safety Report 17462038 (Version 3)
Quarter: 2020Q3

REPORT INFORMATION
  Report Type: Spontaneous
  Country: US (occurrence: US)
  Receive Date: 20200226
  Receipt Date: 20200721
  Transmission Date: 20201102
  Serious: No
  Sender: FDA-Public Use
  Company Number: US-SHIRE-US202007493

PATIENT
  Age: 47 Year
  Sex: Female

DRUGS (2)
  1. GATTEX [Suspect]
     Active Substance: TEDUGLUTIDE\WATER
     Dosage: 1.92 MILLIGRAM, 1X/DAY:QD
     Route: 058
     Dates: start: 20200220
  2. GATTEX [Suspect]
     Active Substance: TEDUGLUTIDE\WATER
     Indication: SHORT-BOWEL SYNDROME
     Dosage: 0.1916 (UNITS UNKNOWN)
     Route: 058
     Dates: start: 20200220

REACTIONS (6)
  - Stoma complication [Unknown]
  - Peripheral swelling [Not Recovered/Not Resolved]
  - Injection site pain [Recovered/Resolved]
  - Fluid retention [Not Recovered/Not Resolved]
  - Inappropriate schedule of product administration [Unknown]
  - Periorbital swelling [Not Recovered/Not Resolved]

NARRATIVE: CASE EVENT DATE: 20200220
